FAERS Safety Report 8129281-8 (Version None)
Quarter: 2012Q1

REPORT INFORMATION
  Report Type: 
  Country: None (occurrence: None)
  Receive Date: 20120210
  Receipt Date: 20111129
  Transmission Date: 20120608
  Serious: No
  Sender: FDA-Public Use
  Company Number: US-BRISTOL-MYERS SQUIBB COMPANY-16256547

PATIENT
  Age: 63 Year
  Sex: Female
  Weight: 99 kg

DRUGS (4)
  1. METHOTREXATE [Concomitant]
     Route: 048
  2. FOLIC ACID [Concomitant]
  3. ORENCIA [Suspect]
     Indication: RHEUMATOID ARTHRITIS
     Dosage: INCREASED UPTO1000MG IN APR OR MAY11 DECREASED TO 750MG LAST DOSE:15NOV11
     Route: 042
     Dates: start: 20101201
  4. LEUCOVORIN CALCIUM [Concomitant]

REACTIONS (1)
  - COUGH [None]
